FAERS Safety Report 5331115-1 (Version None)
Quarter: 2007Q2

REPORT INFORMATION
  Report Type: 
  Country: None (occurrence: None)
  Receive Date: 20070518
  Receipt Date: 20070518
  Transmission Date: 20071010
  Serious: Yes (Life-Threatening, Hospitalization)
  Sender: FDA-Public Use
  Company Number: None

PATIENT
  Age: 39 Year
  Sex: Female
  Weight: 85.7298 kg

DRUGS (2)
  1. SEASONALE [Suspect]
     Indication: DYSMENORRHOEA
     Dosage: 1 PILL DAILY PO
     Route: 048
     Dates: start: 20060527, end: 20060706
  2. SEASONALE [Suspect]
     Indication: MIGRAINE
     Dosage: 1 PILL DAILY PO
     Route: 048
     Dates: start: 20060527, end: 20060706

REACTIONS (3)
  - PULMONARY EMBOLISM [None]
  - PULMONARY INFARCTION [None]
  - VEIN DISORDER [None]
